FAERS Safety Report 10024544 (Version 1)
Quarter: 2014Q1

REPORT INFORMATION
  Report Type: Spontaneous
  Country: FR (occurrence: None)
  Receive Date: 20140204
  Receipt Date: 20140204
  Transmission Date: 20141002
  Serious: Yes (Hospitalization)
  Sender: FDA-Public Use
  Company Number: FR-013013

PATIENT
  Age: 1 Day
  Sex: Male
  Weight: 3.6 kg

DRUGS (4)
  1. PROPESS [Suspect]
     Indication: INDUCED LABOUR
     Route: 064
     Dates: start: 20130724, end: 20130725
  2. CLAMOXYL /00249601/ [Suspect]
     Indication: PRODUCT USED FOR UNKNOWN INDICATION
     Route: 064
     Dates: start: 20130724, end: 20130726
  3. OXYTOCIN [Suspect]
     Indication: PRODUCT USED FOR UNKNOWN INDICATION
     Dosage: 15 THEN 30 THEN 45 ML PER HOUR, FOR 2 DAYS
     Route: 064
     Dates: start: 20130725, end: 20130726
  4. DONORMYL /00334102/ [Concomitant]

REACTIONS (6)
  - Hypotonia [None]
  - Hypoglycaemia [None]
  - Clonus [None]
  - Cyanosis [None]
  - Coma [None]
  - Metabolic disorder [None]
